FAERS Safety Report 4484236-X (Version None)
Quarter: 2004Q3

REPORT INFORMATION
  Report Type: 
  Country: None (occurrence: None)
  Receive Date: 20040921
  Receipt Date: 20040206
  Transmission Date: 20050211
  Serious: Yes (Hospitalization)
  Sender: FDA-Public Use
  Company Number: 163-20785-04020241

PATIENT
  Age: 67 Year
  Sex: Female
  Weight: 129 kg

DRUGS (7)
  1. THALOMID [Suspect]
     Dosage: 50 MG, QHS, ORAL
     Route: 048
     Dates: start: 20040101
  2. ASPIRIN [Concomitant]
  3. ATENOLOL [Concomitant]
  4. GLIPIZIDE [Concomitant]
  5. CARDIZEM CD [Concomitant]
  6. PROTONIX [Concomitant]
  7. NITROGLYCERINE (GLYCERYL TRINITRATE) (OINTMENT) [Concomitant]

REACTIONS (2)
  - CARDIAC FAILURE CONGESTIVE [None]
  - CHEST PAIN [None]
